FAERS Safety Report 21536683 (Version 2)
Quarter: 2022Q4

REPORT INFORMATION
  Report Type: Spontaneous
  Country: JP (occurrence: JP)
  Receive Date: 20221101
  Receipt Date: 20221118
  Transmission Date: 20230113
  Serious: Yes (Hospitalization)
  Sender: FDA-Public Use
  Company Number: JP-TEVA-2022-JP-2821847

PATIENT
  Sex: Female

DRUGS (9)
  1. DIAZEPAM [Suspect]
     Active Substance: DIAZEPAM
     Indication: Status epilepticus
     Route: 065
  2. MIDAZOLAM [Suspect]
     Active Substance: MIDAZOLAM
     Indication: Status epilepticus
     Dosage: 10MG/H , ADDITIONAL INFO: ACTION TAKEN: INITIALLY TREATMENT CONTINUED AFTERWARDS, DOSE GRADUALLY RED
     Route: 065
  3. LACOSAMIDE [Suspect]
     Active Substance: LACOSAMIDE
     Indication: Epilepsy
     Dosage: AT LOW DOSE
     Route: 065
  4. LACOSAMIDE [Suspect]
     Active Substance: LACOSAMIDE
     Indication: Epilepsy
     Dosage: 200 MILLIGRAM DAILY;
     Route: 065
  5. PROPOFOL [Suspect]
     Active Substance: PROPOFOL
     Indication: Status epilepticus
     Dosage: 120 MG/H , ADDITIONAL INFO: ACTION TAKEN: INITIALLY TREATMENT CONTINUED AFTERWARDS, DOSE GRADUALLY R
     Route: 065
  6. FOSPHENYTOIN [Suspect]
     Active Substance: FOSPHENYTOIN
     Indication: Status epilepticus
     Route: 065
  7. VALPROATE [Suspect]
     Active Substance: VALPROIC ACID
     Indication: Status epilepticus
     Dosage: 1200 MILLIGRAM DAILY; ADDITIONAL INFO: ACTION TAKEN: TREATMENT CONTINUED
     Route: 065
  8. AMIODARONE [Concomitant]
     Active Substance: AMIODARONE
     Indication: Ventricular tachycardia
     Route: 065
  9. THIOPENTAL [Concomitant]
     Active Substance: THIOPENTAL
     Indication: Status epilepticus
     Dosage: 250 MG/H
     Route: 065

REACTIONS (3)
  - Drug ineffective [Recovering/Resolving]
  - Ventricular tachycardia [Recovering/Resolving]
  - Loss of consciousness [Recovering/Resolving]
